FAERS Safety Report 8459853-2 (Version None)
Quarter: 2012Q2

REPORT INFORMATION
  Report Type: 
  Country: None (occurrence: None)
  Receive Date: 20120622
  Receipt Date: 20120616
  Transmission Date: 20120825
  Serious: Yes (Other)
  Sender: FDA-Public Use
  Company Number: PHHY2012MX022601

PATIENT
  Sex: Male

DRUGS (4)
  1. MYFORTIC [Suspect]
     Indication: HENOCH-SCHONLEIN PURPURA
     Dosage: 360 MG, ( 3 TABS DAILY)
     Dates: start: 20111201
  2. OMEPRAZOLE [Concomitant]
     Dosage: 2 DAILY
     Dates: start: 20111201
  3. ENALAPRIL MALEATE [Concomitant]
     Dosage: UNK UKN, UNK
     Dates: start: 20090901
  4. CITALOPRAM HYDROBROMIDE [Concomitant]
     Dosage: 1
     Dates: start: 20100101

REACTIONS (5)
  - DYSPHEMIA [None]
  - EYE DISORDER [None]
  - VOMITING [None]
  - NAUSEA [None]
  - DEPRESSION [None]
